FAERS Safety Report 6198232-8 (Version None)
Quarter: 2009Q2

REPORT INFORMATION
  Report Type: 
  Country: None (occurrence: None)
  Receive Date: 20090521
  Receipt Date: 20090507
  Transmission Date: 20091009
  Serious: Yes (Death)
  Sender: FDA-Public Use
  Company Number: IE-GENENTECH-282315

PATIENT
  Sex: Male

DRUGS (3)
  1. XOLAIR [Suspect]
     Indication: DRUG USE FOR UNKNOWN INDICATION
     Dosage: 375 MG, Q2W
     Dates: start: 20081101
  2. BLOOD PRESSURE MEDICATION NOS [Concomitant]
     Indication: CARDIAC DISORDER
  3. CARDIAC MEDICATION NOS [Concomitant]
     Indication: BLOOD PRESSURE

REACTIONS (5)
  - ASTHMA [None]
  - DEATH [None]
  - MALAISE [None]
  - MYOCARDIAL INFARCTION [None]
  - PULMONARY EMBOLISM [None]
